FAERS Safety Report 15367775 (Version 1)
Quarter: 2018Q3

REPORT INFORMATION
  Report Type: Spontaneous
  Country: US (occurrence: US)
  Receive Date: 20180904
  Receipt Date: 20180904
  Transmission Date: 20181010
  Serious: Yes (Life-Threatening, Hospitalization)
  Sender: FDA-Public Use
  Company Number: None

PATIENT
  Age: 73 Year
  Sex: Male

DRUGS (22)
  1. MEROPENEM. [Concomitant]
     Active Substance: MEROPENEM
  2. AMIKACIN. [Concomitant]
     Active Substance: AMIKACIN
  3. CASPOFUNGIN [Concomitant]
     Active Substance: CASPOFUNGIN
  4. CYCLOPHOSPHAMIDE. [Concomitant]
     Active Substance: CYCLOPHOSPHAMIDE
  5. TOCILIZUMAB. [Concomitant]
     Active Substance: TOCILIZUMAB
  6. VANCOMYCIN [Concomitant]
     Active Substance: VANCOMYCIN
  7. LEVOFLOXACIN. [Concomitant]
     Active Substance: LEVOFLOXACIN
  8. POSACONAZOLE [Concomitant]
     Active Substance: POSACONAZOLE
  9. ACYCLOVIR. [Concomitant]
     Active Substance: ACYCLOVIR
  10. ALLOPURINOL. [Concomitant]
     Active Substance: ALLOPURINOL
  11. CEFAZOLIN [Concomitant]
     Active Substance: CEFAZOLIN
  12. CEFEPIME [Concomitant]
     Active Substance: CEFEPIME HYDROCHLORIDE
  13. DEXAMETHASONE. [Concomitant]
     Active Substance: DEXAMETHASONE
  14. NOREPINEPHRINE. [Concomitant]
     Active Substance: NOREPINEPHRINE
  15. YESCARTA [Suspect]
     Active Substance: AXICABTAGENE CILOLEUCEL
     Dates: start: 20180514
  16. MELATONIN [Concomitant]
     Active Substance: MELATONIN
  17. FLUDARABINE [Concomitant]
     Active Substance: FLUDARABINE PHOSPHATE
  18. LEVETIRACETAM. [Concomitant]
     Active Substance: LEVETIRACETAM
  19. METHYLPHENIDATE. [Concomitant]
     Active Substance: METHYLPHENIDATE
  20. ATOVAQUONE. [Concomitant]
     Active Substance: ATOVAQUONE
  21. BACTRIM [Concomitant]
     Active Substance: SULFAMETHOXAZOLE\TRIMETHOPRIM
  22. HYDROCORTISONE. [Concomitant]
     Active Substance: HYDROCORTISONE

REACTIONS (11)
  - Dysphagia [None]
  - Staphylococcal infection [None]
  - Mental status changes [None]
  - Aphasia [None]
  - Cellulitis [None]
  - Cytopenia [None]
  - Cerebellar infarction [None]
  - Cytokine release syndrome [None]
  - Neurotoxicity [None]
  - Hypotension [None]
  - Clostridium difficile infection [None]
